FAERS Safety Report 10283415 (Version 1)
Quarter: 2014Q3

REPORT INFORMATION
  Report Type: Spontaneous
  Country: FR (occurrence: FR)
  Receive Date: 20140708
  Receipt Date: 20140708
  Transmission Date: 20150326
  Serious: Yes (Hospitalization)
  Sender: FDA-Public Use
  Company Number: FR-ROCHE-1430196

PATIENT
  Age: 88 Year
  Sex: Female

DRUGS (10)
  1. ROCEPHINE [Suspect]
     Active Substance: CEFTRIAXONE SODIUM
     Indication: TERTIARY SYPHILIS
     Route: 065
     Dates: start: 20130514, end: 20130519
  2. LEDERFOLINE [Concomitant]
     Active Substance: LEUCOVORIN CALCIUM
     Route: 048
     Dates: start: 20140514
  3. ZITHROMAX [Suspect]
     Active Substance: AZITHROMYCIN DIHYDRATE
     Indication: EYE INFECTION
     Route: 048
     Dates: start: 20140514, end: 20140520
  4. METHOTREXATE [Concomitant]
     Active Substance: METHOTREXATE
     Indication: RHEUMATOID ARTHRITIS
     Route: 065
  5. CHIBRO CADRON [Concomitant]
     Active Substance: DEXAMETHASONE SODIUM PHOSPHATE\NEOMYCIN SULFATE
     Indication: EYE INFECTION
     Route: 047
     Dates: start: 20140514
  6. ROCEPHINE [Suspect]
     Active Substance: CEFTRIAXONE SODIUM
     Dosage: DOSE REDUCED.
     Route: 065
     Dates: start: 20130519, end: 20140523
  7. MAXIDEX [Concomitant]
     Active Substance: DEXAMETHASONE
     Route: 047
     Dates: start: 20140306
  8. CORTANCYL [Concomitant]
     Active Substance: PREDNISONE
     Dosage: DOSE= 15MG ON 29-MAR-2014 THEN GRADUDAL DECREASE
     Route: 048
     Dates: start: 20140314
  9. MALOCIDE [Suspect]
     Active Substance: PYRIMETHAMINE
     Indication: EYE INFECTION TOXOPLASMAL
     Route: 048
     Dates: start: 20140514
  10. ATROPINE SULFATE. [Concomitant]
     Active Substance: ATROPINE SULFATE
     Route: 065
     Dates: start: 20140306

REACTIONS (3)
  - Hallucination, visual [Not Recovered/Not Resolved]
  - Vomiting [Recovered/Resolved]
  - Cough [Recovered/Resolved]

NARRATIVE: CASE EVENT DATE: 20140519
